FAERS Safety Report 8851160 (Version 2)
Quarter: 2012Q4

REPORT INFORMATION
  Report Type: 
  Country: US (occurrence: US)
  Receive Date: 20121019
  Receipt Date: 20121024
  Transmission Date: 20130627
  Serious: No
  Sender: FDA-Public Use
  Company Number: US-VERTEX PHARMACEUTICAL INC.-2012-022794

PATIENT
  Age: 57 Year
  Sex: Female
  Weight: 69 kg

DRUGS (11)
  1. INCIVEK [Suspect]
     Indication: HEPATITIS C
     Dosage: 750 mg, tid
     Route: 048
     Dates: start: 20120921
  2. RIBAVIRIN [Suspect]
     Indication: HEPATITIS C
     Dosage: 200 mg, UNK
     Dates: start: 20120921
  3. PEGASYS [Suspect]
     Indication: HEPATITIS C
     Dosage: 180 ?g, UNK
     Route: 058
     Dates: start: 20120920
  4. METHADONE [Concomitant]
     Dosage: 10 mg, UNK
     Route: 048
  5. OXYCODONE [Concomitant]
     Dosage: 5 mg, UNK
     Route: 048
  6. BACLOFEN [Suspect]
     Dosage: 10 mg, UNK
     Route: 048
  7. BIOTENE                            /00203502/ [Concomitant]
     Route: 048
  8. SILYMARIN [Concomitant]
     Dosage: 140 mg, UNK
  9. PUMPKIN OIL [Concomitant]
     Route: 048
  10. PROCHLORPERAZ [Concomitant]
     Dosage: 10 mg, UNK
     Route: 048
  11. ALPHA LIPOIC ACID [Concomitant]
     Dosage: 100 mg, UNK
     Route: 048

REACTIONS (4)
  - Dry skin [Not Recovered/Not Resolved]
  - Dry mouth [Not Recovered/Not Resolved]
  - Rash [Recovered/Resolved]
  - Nausea [Not Recovered/Not Resolved]
